FAERS Safety Report 6902162-0 (Version None)
Quarter: 2010Q3

REPORT INFORMATION
  Report Type: 
  Country: None (occurrence: None)
  Receive Date: 20100803
  Receipt Date: 20100726
  Transmission Date: 20110219
  Serious: Yes (Hospitalization)
  Sender: FDA-Public Use
  Company Number: US-MERCK-1007USA03450

PATIENT
  Age: 73 Year
  Sex: Female

DRUGS (5)
  1. COZAAR [Suspect]
     Indication: HYPERTENSION
     Route: 048
     Dates: start: 20020101, end: 20100501
  2. HYDROCHLOROTHIAZIDE [Concomitant]
     Route: 065
  3. SIMVASTATIN [Concomitant]
     Route: 065
  4. PREMARIN [Concomitant]
     Route: 065
  5. COZAAR [Suspect]
     Route: 048
     Dates: start: 20100501

REACTIONS (5)
  - CARDIAC DISORDER [None]
  - HEART RATE DECREASED [None]
  - HYPERTENSION [None]
  - PRURITUS [None]
  - RASH [None]
